FAERS Safety Report 4707012-9 (Version None)
Quarter: 2005Q3

REPORT INFORMATION
  Report Type: 
  Country: None (occurrence: None)
  Receive Date: 20050701
  Receipt Date: 20050617
  Transmission Date: 20060218
  Serious: Yes (Death, Hospitalization)
  Sender: FDA-Public Use
  Company Number: 215285

PATIENT
  Age: 64 Year
  Sex: Female
  Weight: 70.5 kg

DRUGS (15)
  1. AVASTIN [Suspect]
     Indication: PERITONEAL CARCINOMA
     Dosage: 10 MG/KG; 10 MG/KG, Q2W, INTRAVENOUS
     Dates: start: 20050419, end: 20050419
  2. CYCLOPHOSPHAMIDE [Suspect]
     Indication: PERITONEAL CARCINOMA
     Dosage: 50 MG, QD, ORAL
     Route: 048
     Dates: start: 20050419, end: 20050425
  3. CONJUGATED ESTROGEN [Concomitant]
  4. RAMIPRIL [Concomitant]
  5. ATIVAN [Concomitant]
  6. CENTRUM (MULTIVITAMINS NOS, MINERALS NOS) [Concomitant]
  7. TYLENOL [Concomitant]
  8. COLACE (DOCUSATE SODIUM) [Concomitant]
  9. SENOKOT [Concomitant]
  10. PULMICORT [Concomitant]
  11. DULCOLAX [Concomitant]
  12. EPIPEN (EPINEPHRINE) [Concomitant]
  13. PROCTOSEDYL OINTMENT (HYDROCORTISONE, ESCULOSIDE, FRAMYCETIN SULFATE, [Concomitant]
  14. PREDNISONE [Concomitant]
  15. VITAMIN SUPPLEMENTS (VITAMINS NOS) [Concomitant]

REACTIONS (16)
  - BUNDLE BRANCH BLOCK LEFT [None]
  - DILATATION ATRIAL [None]
  - DILATATION VENTRICULAR [None]
  - DYSPNOEA [None]
  - GENERAL PHYSICAL HEALTH DETERIORATION [None]
  - HYPOKINESIA [None]
  - OXYGEN SATURATION DECREASED [None]
  - PULMONARY EMBOLISM [None]
  - PULMONARY HYPERTENSION [None]
  - RESPIRATORY ALKALOSIS [None]
  - RIGHT VENTRICULAR SYSTOLIC PRESSURE INCREASED [None]
  - TACHYPNOEA [None]
  - TRICUSPID VALVE INCOMPETENCE [None]
  - TROPONIN T INCREASED [None]
  - VENTRICULAR DYSFUNCTION [None]
  - VENTRICULAR HYPOKINESIA [None]
